FAERS Safety Report 20876589 (Version 1)
Quarter: 2022Q2

REPORT INFORMATION
  Report Type: Report from Study
  Country: FR (occurrence: FR)
  Receive Date: 20220526
  Receipt Date: 20220526
  Transmission Date: 20220721
  Serious: Yes (Other)
  Sender: FDA-Public Use
  Company Number: FR-MYLANLABS-2022M1038525

PATIENT
  Sex: Female

DRUGS (3)
  1. EPINEPHRINE [Suspect]
     Active Substance: EPINEPHRINE
     Indication: Ovarian epithelial cancer
     Dosage: 3.5 MILLIGRAM, CYCLE
     Route: 033
  2. CISPLATIN [Suspect]
     Active Substance: CISPLATIN
     Indication: Ovarian epithelial cancer
     Dosage: 105 MILLIGRAM, CYCLE
     Route: 033
  3. SALINE [Concomitant]
     Active Substance: SODIUM CHLORIDE
     Indication: Ovarian epithelial cancer
     Dosage: 3 LITER
     Route: 033

REACTIONS (2)
  - Supraventricular tachycardia [Unknown]
  - Off label use [Unknown]
